FAERS Safety Report 8834221 (Version 1)
Quarter: 2012Q4

REPORT INFORMATION
  Report Type: 
  Country: US (occurrence: US)
  Receive Date: 20121010
  Receipt Date: 20121010
  Transmission Date: 20130627
  Serious: Yes (Hospitalization)
  Sender: FDA-Public Use
  Company Number: US-ARROW-2012-17451

PATIENT
  Age: 16 Year
  Sex: Female

DRUGS (4)
  1. QUETIAPINE [Suspect]
     Indication: SCHIZOAFFECTIVE DISORDER
     Dosage: 100 mg, daily
     Route: 048
  2. QUETIAPINE [Suspect]
     Dosage: 15 mg, daily
     Route: 048
  3. FLUOXETINE HYDROCHLORIDE (UNKNOWN) [Suspect]
     Indication: SCHIZOAFFECTIVE DISORDER
     Dosage: 100 mg XR , daily
     Route: 048
  4. ZIPRASIDONE [Suspect]
     Indication: PRODUCT USED FOR UNKNOWN INDICATION
     Dosage: 60 mg, bid
     Route: 048

REACTIONS (2)
  - Mood altered [Recovered/Resolved]
  - Galactorrhoea [Recovered/Resolved]
